FAERS Safety Report 7651046-1 (Version None)
Quarter: 2011Q3

REPORT INFORMATION
  Report Type: 
  Country: None (occurrence: None)
  Receive Date: 20110802
  Receipt Date: 20090203
  Transmission Date: 20111222
  Serious: Yes (Life-Threatening, Other)
  Sender: FDA-Public Use
  Company Number: US-BAYER-200827711NA

PATIENT
  Sex: Male

DRUGS (35)
  1. OMNISCAN [Suspect]
     Indication: NUCLEAR MAGNETIC RESONANCE IMAGING
     Dosage: 35CC
     Dates: start: 20010807, end: 20010807
  2. GADOLINIUM IN UNSPECIFIED DRUG [Suspect]
     Dosage: UNK, ONCE
     Route: 042
     Dates: start: 19930109, end: 19930109
  3. GADOLINIUM IN UNSPECIFIED DRUG [Suspect]
     Dosage: UNK, ONCE
     Dates: start: 20001115, end: 20001115
  4. OMNISCAN [Suspect]
     Dosage: 40CC
     Dates: start: 20030506, end: 20030506
  5. OMNISCAN [Suspect]
     Dosage: UNK UNK, ONCE
     Dates: start: 20050621, end: 20050621
  6. GADOLINIUM IN UNSPECIFIED DRUG [Suspect]
     Dosage: UNK, ONCE
     Dates: start: 20090824, end: 20090824
  7. PROGRAF [Concomitant]
  8. METOPROLOL TARTRATE [Concomitant]
  9. OMNISCAN [Suspect]
     Indication: IMAGING PROCEDURE
     Dates: start: 20030506, end: 20030506
  10. GADOLINIUM IN UNSPECIFIED DRUG [Suspect]
     Dosage: UNK, ONCE
     Dates: start: 19980505, end: 19980505
  11. GADOLINIUM IN UNSPECIFIED DRUG [Suspect]
     Dosage: UNK, ONCE
     Dates: start: 20091007, end: 20091007
  12. EPOGEN [Concomitant]
  13. GADOLINIUM IN UNSPECIFIED DRUG [Suspect]
     Dosage: UNK, ONCE
     Dates: start: 19900518, end: 19900518
  14. GADOLINIUM IN UNSPECIFIED DRUG [Suspect]
     Dosage: UNK
     Dates: start: 19900608, end: 19900608
  15. GADOLINIUM IN UNSPECIFIED DRUG [Suspect]
     Dosage: UNK
     Dates: start: 19951117, end: 19951117
  16. GADOLINIUM IN UNSPECIFIED DRUG [Suspect]
     Dosage: UNK, ONCE
     Dates: start: 19970630, end: 19970630
  17. ALLOPURINOL [Concomitant]
  18. LISINOPRIL [Concomitant]
  19. MAGNEVIST [Suspect]
     Dosage: UNK, ONCE
     Dates: start: 19940527, end: 19940527
  20. GADOLINIUM IN UNSPECIFIED DRUG [Suspect]
     Dosage: UNK
     Dates: start: 19971121, end: 19971121
  21. GADOLINIUM IN UNSPECIFIED DRUG [Suspect]
     Dosage: UNK, ONCE
     Dates: start: 20091018, end: 20091018
  22. COLCHICINE [Concomitant]
  23. CELLCEPT [Concomitant]
  24. MAGNEVIST [Suspect]
     Indication: NUCLEAR MAGNETIC RESONANCE IMAGING
     Dosage: UNK, ONCE
     Route: 042
     Dates: start: 19911014, end: 19911014
  25. OMNISCAN [Suspect]
     Dates: start: 20050621, end: 20050621
  26. GADOLINIUM IN UNSPECIFIED DRUG [Suspect]
     Indication: NUCLEAR MAGNETIC RESONANCE IMAGING
     Dosage: UNK UNK, ONCE
     Dates: start: 19890921, end: 19890921
  27. GADOLINIUM IN UNSPECIFIED DRUG [Suspect]
     Dosage: UNK
     Route: 042
     Dates: start: 19940318, end: 19940318
  28. GADOLINIUM IN UNSPECIFIED DRUG [Suspect]
     Indication: NUCLEAR MAGNETIC RESONANCE IMAGING BRAIN
     Dosage: UNK, ONCE
     Dates: start: 19940325, end: 19940325
  29. GADOLINIUM IN UNSPECIFIED DRUG [Suspect]
     Dosage: UNK
     Route: 042
     Dates: start: 19961003, end: 19961003
  30. GADOLINIUM IN UNSPECIFIED DRUG [Suspect]
     Dosage: UNK, ONCE
     Dates: start: 20081005, end: 20081005
  31. GADOLINIUM IN UNSPECIFIED DRUG [Suspect]
     Dosage: UNK, ONCE
     Route: 042
     Dates: start: 19910105, end: 19910105
  32. GADOLINIUM IN UNSPECIFIED DRUG [Suspect]
     Dosage: UNK, ONCE
     Route: 042
     Dates: start: 19941215, end: 19941215
  33. TACROLIMUS [Concomitant]
  34. GADOLINIUM IN UNSPECIFIED DRUG [Suspect]
     Dosage: UNK, ONCE
     Route: 042
     Dates: start: 19930308, end: 19930308
  35. GADOLINIUM IN UNSPECIFIED DRUG [Suspect]
     Dosage: UNK, ONCE
     Dates: start: 20090213, end: 20090213

REACTIONS (9)
  - NEPHROGENIC SYSTEMIC FIBROSIS [None]
  - JOINT STIFFNESS [None]
  - JOINT INJURY [None]
  - INJURY [None]
  - ANXIETY [None]
  - SKIN HYPERTROPHY [None]
  - MUSCLE ATROPHY [None]
  - PAIN [None]
  - ANHEDONIA [None]
